FAERS Safety Report 5072270-0 (Version None)
Quarter: 2006Q3

REPORT INFORMATION
  Report Type: 
  Country: None (occurrence: None)
  Receive Date: 20060801
  Receipt Date: 20060719
  Transmission Date: 20061208
  Serious: Yes (Other)
  Sender: FDA-Public Use
  Company Number: 200611797BCC

PATIENT
  Sex: Female

DRUGS (6)
  1. ALEVE [Suspect]
     Indication: OSTEOARTHRITIS
     Dosage: 220 MG, PRN, ORAL
     Route: 048
     Dates: start: 19800101, end: 20060301
  2. ALEVE [Suspect]
     Indication: PAIN
     Dosage: 220 MG, PRN, ORAL
     Route: 048
     Dates: start: 19800101, end: 20060301
  3. 81  MG BAYER ASPIRIN (ACETYLSALICYLIC ACID) [Suspect]
     Indication: DRUG USE FOR UNKNOWN INDICATION
     Dosage: 220 MG, PRN, ORAL
     Route: 048
     Dates: start: 19800101, end: 20060301
  4. NEXIUM [Concomitant]
  5. LEXAPRO [Concomitant]
  6. TRAMADOL HCL [Concomitant]

REACTIONS (3)
  - CEREBRAL ARTERIOSCLEROSIS [None]
  - DUODENAL POLYP [None]
  - ERYTHEMA [None]
